FAERS Safety Report 24607185 (Version 1)
Quarter: 2024Q4

REPORT INFORMATION
  Report Type: Report from Study
  Country: US (occurrence: US)
  Receive Date: 20241112
  Receipt Date: 20241112
  Transmission Date: 20250114
  Serious: Yes (Hospitalization)
  Sender: ABBVIE
  Company Number: US-ABBVIE-5993871

PATIENT
  Age: 35 Year
  Sex: Male

DRUGS (1)
  1. SKYRIZI [Suspect]
     Active Substance: RISANKIZUMAB-RZAA
     Indication: Crohn^s disease
     Route: 058
     Dates: start: 202402, end: 20241104

REACTIONS (8)
  - Gastrointestinal disorder [Unknown]
  - Crohn^s disease [Unknown]
  - Diarrhoea [Recovered/Resolved]
  - Haematochezia [Unknown]
  - Diarrhoea [Recovering/Resolving]
  - Vomiting [Recovering/Resolving]
  - Abdominal pain lower [Unknown]
  - Feeding disorder [Recovering/Resolving]

NARRATIVE: CASE EVENT DATE: 20240101
